FAERS Safety Report 4493417-0 (Version None)
Quarter: 2004Q4

REPORT INFORMATION
  Report Type: 
  Country: None (occurrence: None)
  Receive Date: 20041104
  Receipt Date: 20040205
  Transmission Date: 20050328
  Serious: Yes (Death)
  Sender: FDA-Public Use
  Company Number: JP-MERCK-0402USA00489

PATIENT
  Age: 33 Year
  Sex: Female

DRUGS (3)
  1. COSMEGEN [Suspect]
     Indication: METASTASES TO LIVER
     Route: 042
     Dates: start: 20031215
  2. CYCLOPHOSPHAMIDE [Suspect]
     Indication: METASTASES TO LIVER
     Route: 042
     Dates: start: 20031215
  3. VINCRISTINE SULFATE [Concomitant]
     Indication: METASTASES TO LIVER
     Route: 042
     Dates: start: 20031215

REACTIONS (2)
  - METASTASES TO LUNG [None]
  - PIGMENTATION DISORDER [None]
